FAERS Safety Report 14129026 (Version 1)
Quarter: 2017Q4

REPORT INFORMATION
  Report Type: Spontaneous
  Country: US (occurrence: US)
  Receive Date: 20171026
  Receipt Date: 20171026
  Transmission Date: 20180321
  Serious: Yes (Death)
  Sender: FDA-Public Use
  Company Number: PHEH2017US034631

PATIENT
  Sex: Male

DRUGS (2)
  1. TAFINLAR [Suspect]
     Active Substance: DABRAFENIB MESYLATE
     Indication: BRONCHIAL CARCINOMA
     Dosage: 1 DF, BID
     Route: 048
     Dates: start: 20170721
  2. MEKINIST [Suspect]
     Active Substance: TRAMETINIB DIMETHYL SULFOXIDE
     Indication: BRONCHIAL CARCINOMA
     Dosage: 2 DF, QD
     Route: 048
     Dates: start: 20170721

REACTIONS (1)
  - Death [Fatal]
